FAERS Safety Report 5133012-3 (Version None)
Quarter: 2006Q4

REPORT INFORMATION
  Report Type: 
  Country: None (occurrence: None)
  Receive Date: 20061017
  Receipt Date: 20061002
  Transmission Date: 20070319
  Serious: No
  Sender: FDA-Public Use
  Company Number: 2006-148492-NL

PATIENT
  Sex: Female

DRUGS (3)
  1. FOLLITROPIN BETA [Suspect]
     Dosage: 50 IU
  2. GANIRELIX ACETATE INJECTION [Suspect]
     Dosage: 0.25 MG
  3. CHORIONIC GONADOTROPIN [Suspect]
     Dosage: DF

REACTIONS (1)
  - ECTOPIC PREGNANCY [None]
